FAERS Safety Report 9716993 (Version 1)
Quarter: 2013Q4

REPORT INFORMATION
  Report Type: Spontaneous
  Country: US (occurrence: US)
  Receive Date: 20131127
  Receipt Date: 20131127
  Transmission Date: 20140711
  Serious: No
  Sender: FDA-Public Use
  Company Number: US-GILEAD-2009-0020278

PATIENT
  Age: 50 Year
  Sex: Female

DRUGS (7)
  1. LETAIRIS [Suspect]
     Indication: COR PULMONALE CHRONIC
     Route: 048
     Dates: start: 20080813
  2. REVATIO [Concomitant]
  3. ASPIRIN [Concomitant]
  4. METOPROLOL [Concomitant]
  5. LISINOPRIL [Concomitant]
  6. DIGOXIN [Concomitant]
  7. PREDNISONE [Concomitant]

REACTIONS (1)
  - Diarrhoea [Not Recovered/Not Resolved]
